FAERS Safety Report 22902069 (Version 4)
Quarter: 2023Q4

REPORT INFORMATION
  Report Type: Spontaneous
  Country: AT (occurrence: AT)
  Receive Date: 20230904
  Receipt Date: 20231124
  Transmission Date: 20240109
  Serious: Yes (Hospitalization)
  Sender: FDA-Public Use
  Company Number: AT-ROCHE-2630569

PATIENT
  Age: 61 Year
  Sex: Female
  Weight: 55 kg

DRUGS (56)
  1. EXEMESTANE [Suspect]
     Active Substance: EXEMESTANE
     Indication: HER2 positive breast cancer
     Dosage: 25 MG, QD (MOST RECENT DOSE: 07 MAY 2019)
     Route: 048
     Dates: start: 20180719
  2. EXEMESTANE [Suspect]
     Active Substance: EXEMESTANE
     Dosage: UNK,MOST RECENT DOSE
     Route: 065
     Dates: start: 20190507
  3. EXEMESTANE [Suspect]
     Active Substance: EXEMESTANE
     Indication: HER2 positive breast cancer
     Dosage: 25 MG,QD (MOST RECENT DOSE: 07/MAY/2019)
     Route: 048
     Dates: start: 20180719
  4. EXEMESTANE [Suspect]
     Active Substance: EXEMESTANE
     Dosage: UNK, MOST RECENT DOSE
     Route: 048
     Dates: start: 20190507
  5. FEMARA [Suspect]
     Active Substance: LETROZOLE
     Indication: HER2 positive breast cancer
     Dosage: RECENT DOSE ON 08 MAY 2019
     Route: 048
     Dates: start: 20190508, end: 20190819
  6. FEMARA [Suspect]
     Active Substance: LETROZOLE
     Dosage: UNK (MOST RECENT DOSE)
     Route: 065
     Dates: start: 20190819
  7. HERCEPTIN [Suspect]
     Active Substance: TRASTUZUMAB
     Indication: HER2 positive breast cancer
     Dosage: 336 MG, Q3W (MOST RECENT DOSE PRIOR TO THE EVENT: 13 JUN 2019)
     Route: 041
     Dates: start: 20181129
  8. HERCEPTIN [Suspect]
     Active Substance: TRASTUZUMAB
     Dosage: 336 MG, Q3W (MOST RECENT DOSE ON 04 JUL 2019)
     Route: 042
     Dates: start: 20180719, end: 20180719
  9. HERCEPTIN [Suspect]
     Active Substance: TRASTUZUMAB
     Dosage: 440 MG,(EVERY 7 DAY)
     Route: 065
  10. KADCYLA [Suspect]
     Active Substance: ADO-TRASTUZUMAB EMTANSINE
     Indication: HER2 positive breast cancer
     Dosage: MOST RECENT DOSE PRIOR TO THE EVENT: 03/OCT/2019
     Route: 042
     Dates: start: 20190829, end: 20190829
  11. KADCYLA [Suspect]
     Active Substance: ADO-TRASTUZUMAB EMTANSINE
     Dosage: UNK (MOST RECENT DOSE PRIOR TO THE EVENT)
     Route: 065
     Dates: start: 20191003
  12. NAVELBINE [Suspect]
     Active Substance: VINORELBINE TARTRATE
     Indication: HER2 positive breast cancer
     Dosage: MOST RECENT DOSE PRIOR TO THE EVENT: 30/NOV/2018, 13/JUN/2019
     Route: 048
     Dates: start: 20180719
  13. NAVELBINE [Suspect]
     Active Substance: VINORELBINE TARTRATE
     Dosage: UNK
     Route: 065
     Dates: start: 20181130
  14. NAVELBINE [Suspect]
     Active Substance: VINORELBINE TARTRATE
     Dosage: UNK
     Route: 065
     Dates: start: 20190613
  15. PERJETA [Suspect]
     Active Substance: PERTUZUMAB
     Dosage: UNK
     Route: 065
     Dates: start: 20180809
  16. PERJETA [Suspect]
     Active Substance: PERTUZUMAB
     Indication: HER2 positive breast cancer
     Dosage: MOST RECENT DOSE PRIOR TO THE EVENT: 09/AUG/2018
     Route: 042
     Dates: start: 20180719
  17. PERJETA [Suspect]
     Active Substance: PERTUZUMAB
     Dosage: 840 MG,3 (MOST RECENT DOSE PRIOR TO THE EVENT: 09/AUG/2018)
     Route: 042
  18. PERJETA [Suspect]
     Active Substance: PERTUZUMAB
     Dosage: 840MG (MOST RECENT DOSE PRIOR TO THE EVENT: 09/AUG/2018)
     Route: 042
     Dates: end: 20190829
  19. PERTUZUMAB [Suspect]
     Active Substance: PERTUZUMAB
     Indication: HER2 positive breast cancer
     Dosage: MOST RECENT DOSE PRIOR TO THE EVENT: 09/AUG/2018
     Route: 042
     Dates: start: 20180719, end: 20180719
  20. TRASTUZUMAB [Suspect]
     Active Substance: TRASTUZUMAB
     Dosage: 336 MG,3 (MOST RECENT DOSE ON 04/JUL/2019.)
     Route: 042
     Dates: start: 20181129
  21. TRASTUZUMAB [Suspect]
     Active Substance: TRASTUZUMAB
     Indication: HER2 positive breast cancer
     Dosage: 440 MG,TIW (MOST RECENT DOSE PRIOR TO THE EVENT: 09/AUG/2018, 30/AUG/2018)
     Route: 042
     Dates: start: 20180719, end: 20180719
  22. TRASTUZUMAB [Suspect]
     Active Substance: TRASTUZUMAB
     Dosage: UNK,MOST RECENT DOSE
     Route: 065
     Dates: start: 20180809
  23. TRASTUZUMAB [Suspect]
     Active Substance: TRASTUZUMAB
     Dosage: UNK,MOST RECENT DOSE
     Route: 065
     Dates: start: 20190516
  24. TRASTUZUMAB [Suspect]
     Active Substance: TRASTUZUMAB
     Indication: HER2 positive breast cancer
     Dosage: 336.000MG TIW
     Route: 042
     Dates: start: 20181129, end: 20190516
  25. TRASTUZUMAB [Suspect]
     Active Substance: TRASTUZUMAB
     Dosage: MOST RECENT DOSE ON 04/JUL/2019.
     Route: 042
     Dates: start: 20190613
  26. VINORELBINE [Suspect]
     Active Substance: VINORELBINE TARTRATE
     Indication: HER2 positive breast cancer
     Dosage: 50 MG (MOST RECENT DOSE PRIOR TO EVENT: 30/NOV/2018, 13/JUN/2019)
     Route: 048
     Dates: start: 20180719, end: 20181130
  27. VINORELBINE [Suspect]
     Active Substance: VINORELBINE TARTRATE
     Dosage: UNK
     Route: 065
  28. PREDNISOLONE [Concomitant]
     Active Substance: PREDNISOLONE
     Indication: Product used for unknown indication
     Dosage: UNK (ONGOING = NOT CHECKED)
     Route: 065
     Dates: start: 20190912, end: 20191114
  29. AZITHROMYCIN [Concomitant]
     Active Substance: AZITHROMYCIN
     Indication: Product used for unknown indication
     Route: 065
  30. AZITHROMYCIN [Concomitant]
     Active Substance: AZITHROMYCIN
     Indication: Product used for unknown indication
     Route: 065
  31. DEXPANTHENOL\HYALURONATE SODIUM [Concomitant]
     Active Substance: DEXPANTHENOL\HYALURONATE SODIUM
     Indication: Product used for unknown indication
     Dosage: UNK
     Route: 065
     Dates: start: 20190221
  32. DEXPANTHENOL\HYALURONATE SODIUM [Concomitant]
     Active Substance: DEXPANTHENOL\HYALURONATE SODIUM
     Indication: Conjunctivitis
  33. VITAMINS WITH MINERALS [Concomitant]
     Active Substance: MINERALS\VITAMINS
     Indication: Product used for unknown indication
     Dosage: UNK (ONGOING = CHECKED)
     Route: 065
     Dates: start: 20181205
  34. DEXABENE [Concomitant]
     Indication: Product used for unknown indication
     Dosage: UNK
     Route: 065
     Dates: start: 20180809
  35. DEXABENE [Concomitant]
     Dosage: UNK
     Route: 065
     Dates: start: 20180809, end: 20190704
  36. DEXABENE [Concomitant]
     Dosage: UNK
     Route: 065
     Dates: end: 20190704
  37. DEXABENE [Concomitant]
     Dosage: UNK
     Route: 065
  38. DEXABENE [Concomitant]
     Dosage: UNK
     Route: 065
  39. DEXABENE [Concomitant]
     Dosage: UNK
     Route: 065
  40. DEXAMETHASONE [Concomitant]
     Active Substance: DEXAMETHASONE
     Indication: Product used for unknown indication
     Dosage: UNK (ONGOING = NOT CHECKED)
     Route: 065
     Dates: start: 20190829, end: 20200213
  41. ESOMEPRAZOLE [Concomitant]
     Active Substance: ESOMEPRAZOLE
     Indication: Product used for unknown indication
     Dosage: ONGOING = NOT CHECKED
     Route: 065
     Dates: start: 20180727, end: 20190615
  42. EUTHYROX [Concomitant]
     Active Substance: LEVOTHYROXINE SODIUM
     Indication: Product used for unknown indication
     Dosage: UNK (ONGOING = CHECKED)
     Route: 065
  43. DIMETHINDENE [Concomitant]
     Active Substance: DIMETHINDENE
     Indication: Product used for unknown indication
     Dosage: UNK
     Route: 065
     Dates: start: 20180809, end: 20190704
  44. DEXAMETHASONE [Concomitant]
     Active Substance: DEXAMETHASONE
     Indication: Product used for unknown indication
     Dosage: UNK
     Route: 065
     Dates: start: 20190819, end: 20190912
  45. HALDOL [Concomitant]
     Active Substance: HALOPERIDOL
     Indication: Product used for unknown indication
     Dosage: UNK
     Route: 065
     Dates: start: 20190727, end: 20190815
  46. HYDROMORPHONE HYDROCHLORIDE [Concomitant]
     Active Substance: HYDROMORPHONE HYDROCHLORIDE
     Indication: Product used for unknown indication
     Dosage: ONGOING = CHECKED
     Route: 065
     Dates: start: 20180727
  47. KYTRIL [Concomitant]
     Active Substance: GRANISETRON HYDROCHLORIDE
     Indication: Product used for unknown indication
     Dosage: UNK (ONGOING = NOT CHECKED)
     Route: 065
     Dates: start: 20190829, end: 20200213
  48. POLYETHYLENE GLYCOLS [Concomitant]
     Active Substance: POLYETHYLENE GLYCOLS
     Indication: Product used for unknown indication
     Dosage: UNK (ONGOING = NOT CHECKED)
     Route: 065
     Dates: start: 20180719
  49. POLYETHYLENE GLYCOLS [Concomitant]
     Active Substance: POLYETHYLENE GLYCOLS
     Dosage: UNK
     Route: 065
  50. MAGNESIUM SUCCINATE [Concomitant]
     Indication: Product used for unknown indication
     Dosage: UNK (ONGOING = CHECKED)
     Route: 065
     Dates: start: 20190819
  51. Novalgin [Concomitant]
     Indication: Product used for unknown indication
     Dosage: UNK
     Route: 065
     Dates: start: 20180727
  52. ONDANSETRON HYDROCHLORIDE [Concomitant]
     Active Substance: ONDANSETRON HYDROCHLORIDE
     Indication: Product used for unknown indication
     Dosage: UNK
     Route: 065
     Dates: start: 20180709, end: 20190206
  53. ONDANSETRON HYDROCHLORIDE [Concomitant]
     Active Substance: ONDANSETRON HYDROCHLORIDE
     Dosage: UNK
     Route: 065
     Dates: end: 20190206
  54. RANITIDINE HYDROCHLORIDE [Concomitant]
     Active Substance: RANITIDINE HYDROCHLORIDE
     Indication: Product used for unknown indication
     Dosage: UNK
     Route: 065
     Dates: start: 20180809, end: 20190704
  55. XGEVA [Concomitant]
     Active Substance: DENOSUMAB
     Indication: Product used for unknown indication
     Dosage: UNK (ONGOING = CHECKED)
     Route: 065
     Dates: start: 20181215
  56. ZOFRAN [Concomitant]
     Active Substance: ONDANSETRON HYDROCHLORIDE
     Indication: Nausea
     Dosage: ONGOING = CHECKED
     Route: 065
     Dates: start: 20190919

REACTIONS (11)
  - Infusion related reaction [Recovered/Resolved]
  - Vertigo [Recovered/Resolved]
  - Dysphagia [Recovered/Resolved]
  - Pyrexia [Recovered/Resolved]
  - Diarrhoea [Not Recovered/Not Resolved]
  - Bone pain [Not Recovered/Not Resolved]
  - Dry skin [Recovered/Resolved]
  - Mucosal dryness [Recovered/Resolved]
  - Nausea [Recovered/Resolved]
  - Vertigo [Not Recovered/Not Resolved]
  - Pain [Recovering/Resolving]

NARRATIVE: CASE EVENT DATE: 20180728
